FAERS Safety Report 25052143 (Version 1)
Quarter: 2025Q1

REPORT INFORMATION
  Report Type: Spontaneous
  Country: US (occurrence: US)
  Receive Date: 20250307
  Receipt Date: 20250307
  Transmission Date: 20250409
  Serious: Yes (Other)
  Sender: PFIZER
  Company Number: US-PFIZER INC-202500050141

PATIENT
  Age: 20 Year
  Sex: Male
  Weight: 108.84 kg

DRUGS (1)
  1. ETHOSUXIMIDE [Suspect]
     Active Substance: ETHOSUXIMIDE
     Indication: Seizure

REACTIONS (1)
  - Drug ineffective [Unknown]
